FAERS Safety Report 11260098 (Version 1)
Quarter: 2015Q3

REPORT INFORMATION
  Report Type: Report from Study
  Country: FI (occurrence: FI)
  Receive Date: 20150710
  Receipt Date: 20150710
  Transmission Date: 20151125
  Serious: Yes (Hospitalization, Other)
  Sender: FDA-Public Use
  Company Number: FI-ABBVIE-15K-055-1421403-00

PATIENT
  Sex: Female

DRUGS (3)
  1. HUMIRA [Suspect]
     Active Substance: ADALIMUMAB
     Indication: CROHN^S DISEASE
     Route: 065
     Dates: end: 2012
  2. HUMIRA [Suspect]
     Active Substance: ADALIMUMAB
     Route: 065
     Dates: start: 201304
  3. HUMIRA [Suspect]
     Active Substance: ADALIMUMAB
     Route: 065
     Dates: start: 201301, end: 201302

REACTIONS (13)
  - Anastomotic leak [Unknown]
  - Female genital tract fistula [Unknown]
  - Haemoglobin decreased [Unknown]
  - Intestinal resection [Unknown]
  - Influenza [Recovered/Resolved]
  - Fatigue [Unknown]
  - Flank pain [Recovered/Resolved]
  - Frequent bowel movements [Unknown]
  - Abdominal abscess [Unknown]
  - Flank pain [Unknown]
  - Intestinal ulcer [Unknown]
  - Abdominal pain upper [Recovered/Resolved]
  - Drug ineffective [Unknown]

NARRATIVE: CASE EVENT DATE: 2009
